FAERS Safety Report 9643267 (Version 2)
Quarter: 2014Q1

REPORT INFORMATION
  Report Type: Spontaneous
  Country: US (occurrence: None)
  Receive Date: 20131022
  Receipt Date: 20140130
  Transmission Date: 20141002
  Serious: Yes (Other)
  Sender: FDA-Public Use
  Company Number: 130350

PATIENT
  Age: 79 Year
  Sex: Female
  Weight: 64.86 kg

DRUGS (2)
  1. SUPREP BOWEL PREP KIT [Suspect]
     Indication: COLONOSCOPY
     Dosage: 2 X 6OZ BOTTLE
     Route: 048
     Dates: start: 20131014, end: 20131015
  2. INHALER [Concomitant]

REACTIONS (3)
  - Haematemesis [None]
  - Diarrhoea haemorrhagic [None]
  - Diverticulitis [None]
